FAERS Safety Report 4659420-2 (Version None)
Quarter: 2005Q2

REPORT INFORMATION
  Report Type: 
  Country: None (occurrence: None)
  Receive Date: 20050412
  Receipt Date: 20050104
  Transmission Date: 20051028
  Serious: No
  Sender: FDA-Public Use
  Company Number: 2005S1000002

PATIENT
  Age: 44 Year
  Sex: Male
  Weight: 90 kg

DRUGS (7)
  1. CUBICIN [Suspect]
     Indication: BACTERAEMIA
     Dosage: 550 MG; Q24H; IV
     Route: 042
     Dates: start: 20041222
  2. LASIX [Concomitant]
  3. ESOMEPRAZOLE [Concomitant]
  4. VANCOMYCIN [Concomitant]
  5. MULTI-VITAMIN [Concomitant]
  6. LACTULOSE [Concomitant]
  7. TRAZODONE [Concomitant]

REACTIONS (5)
  - ACTIVATED PARTIAL THROMBOPLASTIN TIME PROLONGED [None]
  - BLOOD BILIRUBIN INCREASED [None]
  - CONDITION AGGRAVATED [None]
  - INTERNATIONAL NORMALISED RATIO INCREASED [None]
  - RENAL FAILURE CHRONIC [None]
